FAERS Safety Report 9100254 (Version 1)
Quarter: 2013Q1

REPORT INFORMATION
  Report Type: Spontaneous
  Country: AU (occurrence: AU)
  Receive Date: 20130215
  Receipt Date: 20130215
  Transmission Date: 20140127
  Serious: Yes (Hospitalization)
  Sender: FDA-Public Use
  Company Number: AU-B.I. PHARMACEUTICALS,INC./RIDGEFIELD-2013-AU-00115AU

PATIENT
  Age: 69 Year
  Sex: Male

DRUGS (2)
  1. PRADAXA [Suspect]
  2. ACE INHIBITOR [Concomitant]

REACTIONS (3)
  - Thrombocytopenia [Recovered/Resolved]
  - Neutropenia [Unknown]
  - Dyspnoea [Unknown]
